FAERS Safety Report 21692211 (Version 2)
Quarter: 2022Q4

REPORT INFORMATION
  Report Type: Report from Study
  Country: BR (occurrence: BR)
  Receive Date: 20221207
  Receipt Date: 20221222
  Transmission Date: 20230113
  Serious: Yes (Hospitalization)
  Sender: FDA-Public Use
  Company Number: BR-BIOGEN-2022BI01173259

PATIENT
  Age: 26 Year
  Sex: Female
  Weight: 85 kg

DRUGS (1)
  1. TYSABRI [Suspect]
     Active Substance: NATALIZUMAB
     Indication: Multiple sclerosis
     Route: 050
     Dates: start: 202201

REACTIONS (6)
  - Ear pain [Recovered/Resolved]
  - Face injury [Recovered/Resolved]
  - Mouth swelling [Recovered/Resolved]
  - Oral candidiasis [Recovered/Resolved]
  - Speech disorder [Recovered/Resolved]
  - Herpes zoster [Recovered/Resolved]

NARRATIVE: CASE EVENT DATE: 20220501
